FAERS Safety Report 4506548-3 (Version None)
Quarter: 2004Q4

REPORT INFORMATION
  Report Type: 
  Country: None (occurrence: None)
  Receive Date: 20041122
  Receipt Date: 20041111
  Transmission Date: 20050328
  Serious: Yes (Disabling)
  Sender: FDA-Public Use
  Company Number: 200421275GDDC

PATIENT
  Age: 38 Year
  Sex: Female

DRUGS (2)
  1. KETEK [Suspect]
     Indication: OTITIS MEDIA
     Route: 048
     Dates: start: 20041016, end: 20041021
  2. KETEK [Suspect]
     Indication: SINUSITIS
     Route: 048
     Dates: start: 20041016, end: 20041021

REACTIONS (10)
  - CYCLOPLEGIA [None]
  - DIZZINESS [None]
  - DYSGRAPHIA [None]
  - HEADACHE [None]
  - IMPAIRED DRIVING ABILITY [None]
  - IMPAIRED WORK ABILITY [None]
  - PHOTOPHOBIA [None]
  - VISION BLURRED [None]
  - VISUAL BRIGHTNESS [None]
  - VISUAL DISTURBANCE [None]
